FAERS Safety Report 8277826-X (Version None)
Quarter: 2012Q2

REPORT INFORMATION
  Report Type: 
  Country: None (occurrence: None)
  Receive Date: 20120412
  Receipt Date: 20120410
  Transmission Date: 20120825
  Serious: No
  Sender: FDA-Public Use
  Company Number: US-BAYER-2012-035495

PATIENT
  Age: 83 Year
  Sex: Female
  Weight: 81.633 kg

DRUGS (3)
  1. ANTIHYPERTENSIVES [Concomitant]
     Indication: HYPERTENSION
  2. ALEVE (CAPLET) [Suspect]
     Indication: ANALGESIC THERAPY
     Dosage: 1 CAPLET AS NEEDED
     Route: 048
  3. ALEVE (CAPLET) [Suspect]
     Dosage: 2 CAPLET IN THE EVENING
     Route: 048
     Dates: start: 20120409, end: 20120409

REACTIONS (2)
  - INSOMNIA [None]
  - NO ADVERSE EVENT [None]
